FAERS Safety Report 18386384 (Version 1)
Quarter: 2020Q4

REPORT INFORMATION
  Report Type: Spontaneous
  Country: IT (occurrence: IT)
  Receive Date: 20201015
  Receipt Date: 20201015
  Transmission Date: 20210114
  Serious: Yes (Other)
  Sender: FDA-Public Use
  Company Number: IT-PFIZER INC-2020395724

PATIENT
  Age: 39 Year
  Sex: Male

DRUGS (2)
  1. XANAX [Suspect]
     Active Substance: ALPRAZOLAM
     Indication: PSYCHOTIC DISORDER
     Dosage: 5 MG (5 DF), SINGLE TOTAL
     Route: 048
     Dates: start: 20190326, end: 20190326
  2. COCAINE [Suspect]
     Active Substance: COCAINE

REACTIONS (10)
  - Disorientation [Recovering/Resolving]
  - Off label use [Unknown]
  - Alcohol poisoning [Recovering/Resolving]
  - Blood cholinesterase increased [Recovering/Resolving]
  - Drug abuse [Recovering/Resolving]
  - Aggression [Recovering/Resolving]
  - Agitation [Recovering/Resolving]
  - Mood swings [Recovering/Resolving]
  - Blood sodium increased [Recovering/Resolving]
  - Product use in unapproved indication [Unknown]

NARRATIVE: CASE EVENT DATE: 20190326
